FAERS Safety Report 8890595 (Version 1)
Quarter: 2012Q4

REPORT INFORMATION
  Report Type: Report from Study
  Country: US (occurrence: US)
  Receive Date: 20121107
  Receipt Date: 20121107
  Transmission Date: 20130627
  Serious: Yes (Other)
  Sender: FDA-Public Use
  Company Number: US-ASTELLAS-2012US010712

PATIENT
  Age: 59 Year
  Sex: Female

DRUGS (4)
  1. ERLOTINIB TABLET [Suspect]
     Indication: SQUAMOUS CELL CARCINOMA
     Dosage: UNK
     Route: 048
  2. DASATINIB [Suspect]
     Indication: SQUAMOUS CELL CARCINOMA
     Dosage: UNK
     Route: 065
  3. CARBOPLATIN [Concomitant]
     Indication: SQUAMOUS CELL CARCINOMA
     Dosage: UNK
     Route: 065
  4. PACLITAXEL [Concomitant]
     Indication: SQUAMOUS CELL CARCINOMA
     Dosage: UNK
     Route: 065

REACTIONS (2)
  - Pleural effusion [Unknown]
  - Lung disorder [Unknown]
